FAERS Safety Report 8017490-8 (Version None)
Quarter: 2011Q4

REPORT INFORMATION
  Report Type: 
  Country: None (occurrence: None)
  Receive Date: 20111228
  Receipt Date: 20111228
  Transmission Date: 20120403
  Serious: Yes (Other)
  Sender: FDA-Public Use
  Company Number: None

PATIENT
  Age: 78 Year
  Sex: Male
  Weight: 106.5953 kg

DRUGS (1)
  1. ALLOPURINOL [Suspect]
     Indication: GOUT
     Dosage: 1 TABLET BY MOUTH DAILY
     Route: 048
     Dates: start: 20111118, end: 20111124

REACTIONS (4)
  - PYREXIA [None]
  - OEDEMA PERIPHERAL [None]
  - ANURIA [None]
  - BLISTER [None]
